FAERS Safety Report 25750729 (Version 1)
Quarter: 2025Q3

REPORT INFORMATION
  Report Type: Spontaneous
  Country: JP (occurrence: JP)
  Receive Date: 20250902
  Receipt Date: 20250902
  Transmission Date: 20251020
  Serious: Yes (Other)
  Sender: MYLAN
  Company Number: JP-MYLANLABS-2025M1073407

PATIENT
  Age: 75 Year
  Sex: Female

DRUGS (24)
  1. AMLODIPINE [Suspect]
     Active Substance: AMLODIPINE BESYLATE
     Indication: Hypertension
     Dosage: 2.5 MILLIGRAM, BID
     Dates: start: 20250708, end: 20250710
  2. AMLODIPINE [Suspect]
     Active Substance: AMLODIPINE BESYLATE
     Dosage: 2.5 MILLIGRAM, BID
     Route: 048
     Dates: start: 20250708, end: 20250710
  3. AMLODIPINE [Suspect]
     Active Substance: AMLODIPINE BESYLATE
     Dosage: 2.5 MILLIGRAM, BID
     Route: 048
     Dates: start: 20250708, end: 20250710
  4. AMLODIPINE [Suspect]
     Active Substance: AMLODIPINE BESYLATE
     Dosage: 2.5 MILLIGRAM, BID
     Dates: start: 20250708, end: 20250710
  5. BIO-THREE [Concomitant]
     Active Substance: HERBALS
     Indication: Product used for unknown indication
  6. BIO-THREE [Concomitant]
     Active Substance: HERBALS
     Route: 048
  7. BIO-THREE [Concomitant]
     Active Substance: HERBALS
     Route: 048
  8. BIO-THREE [Concomitant]
     Active Substance: HERBALS
  9. AMBROXOL [Concomitant]
     Active Substance: AMBROXOL
     Indication: Product used for unknown indication
  10. AMBROXOL [Concomitant]
     Active Substance: AMBROXOL
     Route: 048
  11. AMBROXOL [Concomitant]
     Active Substance: AMBROXOL
     Route: 048
  12. AMBROXOL [Concomitant]
     Active Substance: AMBROXOL
  13. HERBALS [Concomitant]
     Active Substance: HERBALS
     Indication: Product used for unknown indication
  14. HERBALS [Concomitant]
     Active Substance: HERBALS
     Route: 048
  15. HERBALS [Concomitant]
     Active Substance: HERBALS
     Route: 048
  16. HERBALS [Concomitant]
     Active Substance: HERBALS
  17. EZETIMIBE [Concomitant]
     Active Substance: EZETIMIBE
     Indication: Product used for unknown indication
  18. EZETIMIBE [Concomitant]
     Active Substance: EZETIMIBE
     Route: 048
  19. EZETIMIBE [Concomitant]
     Active Substance: EZETIMIBE
     Route: 048
  20. EZETIMIBE [Concomitant]
     Active Substance: EZETIMIBE
  21. VONOPRAZAN FUMARATE [Concomitant]
     Active Substance: VONOPRAZAN FUMARATE
     Indication: Product used for unknown indication
  22. VONOPRAZAN FUMARATE [Concomitant]
     Active Substance: VONOPRAZAN FUMARATE
     Route: 048
  23. VONOPRAZAN FUMARATE [Concomitant]
     Active Substance: VONOPRAZAN FUMARATE
     Route: 048
  24. VONOPRAZAN FUMARATE [Concomitant]
     Active Substance: VONOPRAZAN FUMARATE

REACTIONS (3)
  - Erythema [Recovered/Resolved]
  - Hot flush [Recovered/Resolved]
  - Hypoaesthesia [Recovered/Resolved]
